FAERS Safety Report 5646429-5 (Version None)
Quarter: 2008Q1

REPORT INFORMATION
  Report Type: 
  Country: None (occurrence: None)
  Receive Date: 20080228
  Receipt Date: 20080214
  Transmission Date: 20080703
  Serious: Yes (Other)
  Sender: FDA-Public Use
  Company Number: 20080038

PATIENT
  Age: 22 Year
  Sex: Female

DRUGS (1)
  1. VENOFER [Suspect]
     Indication: ANAEMIA POSTOPERATIVE
     Dosage: 300 MG ONCE
     Dates: start: 20071205, end: 20071205

REACTIONS (2)
  - INFUSION SITE OEDEMA [None]
  - PHLEBITIS [None]
